FAERS Safety Report 7257997-4 (Version None)
Quarter: 2011Q1

REPORT INFORMATION
  Report Type: 
  Country: None (occurrence: None)
  Receive Date: 20110129
  Receipt Date: 20100715
  Transmission Date: 20110831
  Serious: No
  Sender: FDA-Public Use
  Company Number: US-ABBOTT-10P-163-0651541-00

PATIENT
  Age: 61 Year
  Sex: Female

DRUGS (17)
  1. SONATA [Concomitant]
     Indication: INSOMNIA
  2. HUMIRA [Suspect]
     Indication: PSORIATIC ARTHROPATHY
     Dates: start: 20100601
  3. ASCORBIC ACID [Concomitant]
  4. FLAXSEED OIL [Concomitant]
  5. EVOXAC [Concomitant]
  6. CALCIUM W/VITAMIN D [Concomitant]
  7. VITAMIN E [Concomitant]
  8. NEXIUM [Concomitant]
  9. NEURONTIN [Concomitant]
     Dosage: AT NIGHT
  10. FISH OIL [Concomitant]
  11. CLINORIL [Concomitant]
  12. MAGNESIUM [Concomitant]
  13. GLUCOSAMINE + CHONDROITIN [Concomitant]
  14. FOLIC ACID [Concomitant]
  15. QUININE SULFATE [Concomitant]
  16. HYOMAX SR [Concomitant]
  17. VIOTIN [Concomitant]

REACTIONS (4)
  - INCORRECT DOSE ADMINISTERED [None]
  - WRONG TECHNIQUE IN DRUG USAGE PROCESS [None]
  - INJECTION SITE HAEMORRHAGE [None]
  - INJECTION SITE PAIN [None]
